FAERS Safety Report 13454827 (Version 1)
Quarter: 2017Q2

REPORT INFORMATION
  Report Type: Spontaneous
  Country: JP (occurrence: JP)
  Receive Date: 20170418
  Receipt Date: 20170418
  Transmission Date: 20170830
  Serious: Yes (Other)
  Sender: FDA-Public Use
  Company Number: JP-JNJFOC-20160416849

PATIENT

DRUGS (3)
  1. PREDNISOLONE. [Concomitant]
     Active Substance: PREDNISOLONE
     Route: 065
  2. METHOTREXATE. [Concomitant]
     Active Substance: METHOTREXATE
     Route: 065
  3. SIMPONI [Suspect]
     Active Substance: GOLIMUMAB
     Indication: RHEUMATOID ARTHRITIS
     Route: 058

REACTIONS (9)
  - Epstein-Barr virus infection [Unknown]
  - Pneumonia [Unknown]
  - Adverse reaction [Unknown]
  - Arthritis bacterial [Unknown]
  - Pruritus [Unknown]
  - Organising pneumonia [Unknown]
  - Drug ineffective [Unknown]
  - Skin cancer [Unknown]
  - Systemic lupus erythematosus [Unknown]
